FAERS Safety Report 15750798 (Version 1)
Quarter: 2018Q4

REPORT INFORMATION
  Report Type: Spontaneous
  Country: US (occurrence: US)
  Receive Date: 20181221
  Receipt Date: 20181221
  Transmission Date: 20190205
  Serious: Yes (Other)
  Sender: FDA-Public Use
  Company Number: US-CORDEN PHARMA LATINA S.P.A.-US-2018COR000160

PATIENT

DRUGS (6)
  1. ACTINOMYCIN C [Suspect]
     Active Substance: CACTINOMYCIN
     Indication: EWING^S SARCOMA METASTATIC
     Dosage: UNK
     Route: 065
  2. VINCRISTINE [Suspect]
     Active Substance: VINCRISTINE
     Indication: EWING^S SARCOMA METASTATIC
     Dosage: UNK
     Route: 065
  3. IFOSFAMIDE. [Suspect]
     Active Substance: IFOSFAMIDE
     Indication: EWING^S SARCOMA METASTATIC
     Dosage: 102 G/M2
     Route: 065
  4. DOXORUBICIN [Suspect]
     Active Substance: DOXORUBICIN
     Indication: EWING^S SARCOMA METASTATIC
     Dosage: 360 MG/M2, TOTAL DOSE, UNK
     Route: 065
  5. RADIOTHERAPY [Suspect]
     Active Substance: RADIATION THERAPY
     Indication: EWING^S SARCOMA METASTATIC
     Dosage: RADIATION TO SACRUM: 5580 CGY
     Route: 065
  6. ETOPOSIDE. [Suspect]
     Active Substance: ETOPOSIDE
     Indication: EWING^S SARCOMA METASTATIC
     Dosage: 2700 MG/M2,TOTAL DOSE, UNK
     Route: 065

REACTIONS (3)
  - Premature menopause [Not Recovered/Not Resolved]
  - Uterine injury [Not Recovered/Not Resolved]
  - Amenorrhoea [Not Recovered/Not Resolved]
